FAERS Safety Report 18861458 (Version 3)
Quarter: 2021Q4

REPORT INFORMATION
  Report Type: Report from Study
  Country: JP (occurrence: JP)
  Receive Date: 20210209
  Receipt Date: 20211103
  Transmission Date: 20220303
  Serious: Yes (Other)
  Sender: FDA-Public Use
  Company Number: JP-SA-2021SA033184

PATIENT
  Age: 75 Year
  Sex: Male
  Weight: 53.4 kg

DRUGS (10)
  1. ALEMTUZUMAB [Suspect]
     Active Substance: ALEMTUZUMAB
     Indication: T-cell prolymphocytic leukaemia
     Dosage: 30 MG, TIW
     Route: 041
     Dates: start: 20210125, end: 20210226
  2. ALEMTUZUMAB [Suspect]
     Active Substance: ALEMTUZUMAB
     Dosage: 3 MG
     Route: 041
     Dates: start: 20210118, end: 20210119
  3. ALEMTUZUMAB [Suspect]
     Active Substance: ALEMTUZUMAB
     Dosage: 10 MG
     Route: 041
     Dates: start: 20210120, end: 20210122
  4. SOLU-CORTEF [Concomitant]
     Active Substance: HYDROCORTISONE SODIUM SUCCINATE
     Indication: Prophylaxis
     Dosage: 200 MG
     Route: 042
     Dates: start: 20210118, end: 20210226
  5. LANSOPRAZOLE [Concomitant]
     Active Substance: LANSOPRAZOLE
     Indication: Product used for unknown indication
     Dosage: 15 MG
     Route: 048
     Dates: start: 20201221
  6. FEBUXOSTAT [Concomitant]
     Active Substance: FEBUXOSTAT
     Indication: Product used for unknown indication
     Dosage: UNK
     Route: 048
     Dates: start: 20201212
  7. SULFAMETHOXAZOLE\TRIMETHOPRIM [Concomitant]
     Active Substance: SULFAMETHOXAZOLE\TRIMETHOPRIM
     Indication: Infection prophylaxis
     Dosage: UNK
     Route: 048
     Dates: start: 20201229
  8. ACYCLOVIR [Concomitant]
     Active Substance: ACYCLOVIR
     Indication: Infection prophylaxis
     Dosage: 200 MG
     Route: 048
     Dates: start: 20201226
  9. RESTAMIN [DIPHENHYDRAMINE HYDROCHLORIDE] [Concomitant]
     Indication: Prophylaxis
     Dosage: 50 MG
     Route: 048
     Dates: start: 20210118, end: 20210226
  10. CALONAL [Concomitant]
     Active Substance: ACETAMINOPHEN
     Indication: Prophylaxis
     Dosage: 1000 MG
     Route: 048
     Dates: start: 20210118, end: 20210226

REACTIONS (1)
  - Conjunctival haemorrhage [Unknown]

NARRATIVE: CASE EVENT DATE: 20210201
